FAERS Safety Report 7932487 (Version 2)
Quarter: 2017Q3

REPORT INFORMATION
  Report Type: Spontaneous
  Country: US (occurrence: US)
  Receive Date: 20110505
  Receipt Date: 20170912
  Transmission Date: 20171128
  Serious: No
  Sender: FDA-Public Use
  Company Number: US-ASTRAZENECA-2011SE24382

PATIENT
  Age: 908 Month
  Sex: Male
  Weight: 95.7 kg

DRUGS (12)
  1. METOPROLOL. [Concomitant]
     Active Substance: METOPROLOL
  2. CRESTOR [Suspect]
     Active Substance: ROSUVASTATIN CALCIUM
     Indication: HYPERCHOLESTEROLAEMIA
     Route: 048
     Dates: start: 2005
  3. PLAVIX [Concomitant]
     Active Substance: CLOPIDOGREL BISULFATE
  4. CRESTOR [Suspect]
     Active Substance: ROSUVASTATIN CALCIUM
     Indication: HYPERTRIGLYCERIDAEMIA
     Route: 048
     Dates: start: 2003
  5. SYMBICORT [Suspect]
     Active Substance: BUDESONIDE\FORMOTEROL FUMARATE DIHYDRATE
     Indication: ASTHMA LATE ONSET
     Dosage: 160/4.5 MCG,TWO PUFFS  TWICE PER DAY
     Route: 055
     Dates: start: 2013
  6. ASA [Concomitant]
     Active Substance: ASPIRIN
  7. CRESTOR [Suspect]
     Active Substance: ROSUVASTATIN CALCIUM
     Indication: HYPERCHOLESTEROLAEMIA
     Route: 048
     Dates: start: 2003
  8. SYMBICORT [Suspect]
     Active Substance: BUDESONIDE\FORMOTEROL FUMARATE DIHYDRATE
     Indication: ASTHMA LATE ONSET
     Dosage: 160/4.5 MCG,TWO PUFFS ONCE PER DAY
     Route: 055
     Dates: start: 2013
  9. SPIRIVA [Concomitant]
     Active Substance: TIOTROPIUM BROMIDE MONOHYDRATE
     Indication: ASTHMA LATE ONSET
     Dosage: DAILY
     Route: 055
     Dates: start: 2013
  10. CRESTOR [Suspect]
     Active Substance: ROSUVASTATIN CALCIUM
     Indication: HYPERTRIGLYCERIDAEMIA
     Route: 048
     Dates: start: 2005
  11. SYMBICORT [Suspect]
     Active Substance: BUDESONIDE\FORMOTEROL FUMARATE DIHYDRATE
     Indication: ASTHMA LATE ONSET
     Dosage: 160/4.5 MCG. 2 PUFFS TWICE PER DAY
     Route: 055
     Dates: start: 2013
  12. LOSARTAN. [Concomitant]
     Active Substance: LOSARTAN

REACTIONS (8)
  - Contusion [Unknown]
  - Hypersensitivity [Unknown]
  - Blood glucose increased [Unknown]
  - Wrong technique in product usage process [Unknown]
  - Asthma [Unknown]
  - Dyspnoea [Unknown]
  - Dysphonia [Unknown]
  - Off label use [Unknown]

NARRATIVE: CASE EVENT DATE: 201702
